FAERS Safety Report 4480494-6 (Version None)
Quarter: 2004Q4

REPORT INFORMATION
  Report Type: 
  Country: None (occurrence: None)
  Receive Date: 20041018
  Receipt Date: 20041005
  Transmission Date: 20050328
  Serious: Yes (Life-Threatening)
  Sender: FDA-Public Use
  Company Number: 2004-04327

PATIENT
  Age: 92 Year
  Sex: Male

DRUGS (10)
  1. FAMOTIDINE [Suspect]
     Dosage: 20 MG, BID (VIA NG TUBE), ORAL
     Route: 048
  2. VANCOMYCIN [Concomitant]
  3. TICARCILLIN DISODIUM/CLAVULANATE POTASSIUM  (CLAVULANATE POTASSIUM, TI [Concomitant]
  4. HEPARIN [Concomitant]
  5. METOPROLOL TARTRATE [Concomitant]
  6. ASPIRIN [Concomitant]
  7. FENTANYL [Concomitant]
  8. MIDAZOLAM HCL [Concomitant]
  9. PHYTONADIONE [Concomitant]
  10. INSULIN, REGULAR (INSULIN) [Concomitant]

REACTIONS (2)
  - ELECTROCARDIOGRAM QT PROLONGED [None]
  - TORSADE DE POINTES [None]
